FAERS Safety Report 22229963 (Version 1)
Quarter: 2023Q2

REPORT INFORMATION
  Report Type: Spontaneous
  Country: US (occurrence: None)
  Receive Date: 20230418
  Receipt Date: 20230418
  Transmission Date: 20230722
  Serious: No
  Sender: FDA-Public Use
  Company Number: None

PATIENT
  Age: 80 Year
  Sex: Male
  Weight: 58.51 kg

DRUGS (24)
  1. LAPATINIB DITOSYLATE [Suspect]
     Active Substance: LAPATINIB DITOSYLATE
     Indication: Neutropenia
     Dosage: 1000MG ONCE DAILY ORAL
     Route: 048
  2. ALBUTEROL [Concomitant]
     Active Substance: ALBUTEROL
  3. ALPHAGAN P [Concomitant]
     Active Substance: BRIMONIDINE TARTRATE
  4. AMLODIPINE [Concomitant]
     Active Substance: AMLODIPINE BESYLATE
  5. ARFORMOTEROL [Concomitant]
     Active Substance: ARFORMOTEROL
  6. BUDESONIDE [Concomitant]
     Active Substance: BUDESONIDE
  7. DICYCLOMINE [Concomitant]
     Active Substance: DICYCLOMINE HYDROCHLORIDE
  8. DRONABINOL [Concomitant]
     Active Substance: DRONABINOL
  9. ESCITALOPRAM [Concomitant]
     Active Substance: ESCITALOPRAM OXALATE
  10. HERCEPTIN [Concomitant]
     Active Substance: TRASTUZUMAB
  11. HYDROCORTISONE [Concomitant]
     Active Substance: HYDROCORTISONE
  12. IPRATROPIUM BROMIDE [Concomitant]
     Active Substance: IPRATROPIUM BROMIDE\IPRATROPIUM BROMIDE ANHYDROUS
  13. VITAMIN D3 [Concomitant]
     Active Substance: CHOLECALCIFEROL
  14. NYSTATIN [Concomitant]
     Active Substance: NYSTATIN
  15. OFLOXACIN [Concomitant]
     Active Substance: OFLOXACIN
  16. POTASSIUM CHLORIDE [Concomitant]
     Active Substance: POTASSIUM CHLORIDE
  17. PREDNISOLONE [Concomitant]
     Active Substance: PREDNISOLONE
  18. PROCHLORPERAZINE [Concomitant]
     Active Substance: PROCHLORPERAZINE
  19. ROSUVASTATIN [Concomitant]
     Active Substance: ROSUVASTATIN
  20. TRELEGY ELLIPTA [Concomitant]
     Active Substance: FLUTICASONE FUROATE\UMECLIDINIUM BROMIDE\VILANTEROL TRIFENATATE
  21. VENTOLIN [Concomitant]
     Active Substance: ALBUTEROL SULFATE
  22. VITAMIN D2 [Concomitant]
     Active Substance: ERGOCALCIFEROL
  23. YUPELRI [Concomitant]
     Active Substance: REVEFENACIN
  24. ZIRGAN [Concomitant]
     Active Substance: GANCICLOVIR

REACTIONS (1)
  - Hospice care [None]
